FAERS Safety Report 11877991 (Version 1)
Quarter: 2015Q4

REPORT INFORMATION
  Report Type: Spontaneous
  Country: US (occurrence: None)
  Receive Date: 20151229
  Receipt Date: 20151229
  Transmission Date: 20160305
  Serious: Yes (Hospitalization)
  Sender: FDA-Public Use
  Company Number: None

PATIENT
  Age: 20 Year
  Sex: Male
  Weight: 93.9 kg

DRUGS (8)
  1. VINCRISTINE SULFATE. [Suspect]
     Active Substance: VINCRISTINE SULFATE
     Dates: end: 20150908
  2. DOXORUBICIN HYDROCHLORIDE. [Suspect]
     Active Substance: DOXORUBICIN HYDROCHLORIDE
     Dates: end: 20150710
  3. PEG/L-ASPARAGINASE [Suspect]
     Active Substance: PEGASPARGASE
     Dates: end: 20150901
  4. CYCLOPHOSPHAMIDE. [Suspect]
     Active Substance: CYCLOPHOSPHAMIDE
     Dates: end: 20150818
  5. METHOTREXATE [Suspect]
     Active Substance: METHOTREXATE
     Dates: end: 20150825
  6. THIOGUANINE [Suspect]
     Active Substance: THIOGUANINE
     Dates: end: 20150831
  7. CYTARABINE. [Suspect]
     Active Substance: CYTARABINE
     Dates: end: 20150828
  8. DEXAMETHASONE. [Suspect]
     Active Substance: DEXAMETHASONE
     Dates: end: 20150716

REACTIONS (11)
  - Renal failure [None]
  - Diarrhoea [None]
  - Escherichia sepsis [None]
  - Abdominal pain [None]
  - Hepatic cirrhosis [None]
  - Klebsiella sepsis [None]
  - Tachycardia [None]
  - Acute hepatic failure [None]
  - Confusional state [None]
  - Haemochromatosis [None]
  - Hepatorenal syndrome [None]

NARRATIVE: CASE EVENT DATE: 20150921
